FAERS Safety Report 8867428 (Version 1)
Quarter: 2012Q4

REPORT INFORMATION
  Report Type: 
  Country: US (occurrence: US)
  Receive Date: 20121025
  Receipt Date: 20121025
  Transmission Date: 20130627
  Serious: No
  Sender: FDA-Public Use
  Company Number: US-AMGEN-USASP2012016648

PATIENT
  Age: 52 Year
  Sex: Female

DRUGS (26)
  1. ENBREL [Suspect]
     Indication: OSTEOARTHRITIS
     Dosage: 50 mg, qwk
  2. METOCLOPRAM [Concomitant]
     Dosage: 5 mg, UNK
  3. VICODIN [Concomitant]
     Dosage: 500 mg, UNK
  4. DIAZEPAM [Concomitant]
     Dosage: 2 mg, UNK
  5. TRAMADOL HCL [Concomitant]
     Dosage: 50 mg, UNK
  6. BENADRYL                           /00000402/ [Concomitant]
     Dosage: 25 mg, UNK
  7. RANITIDINE [Concomitant]
     Dosage: 75 mg, UNK
  8. SOMA CMPD [Concomitant]
  9. VITAMIN D3 [Concomitant]
  10. ATENOLOL [Concomitant]
     Dosage: 25 mg, UNK
  11. FOLIC ACID [Concomitant]
     Dosage: 1 mg, UNK
  12. LASIX                              /00032601/ [Concomitant]
     Dosage: 20 mg, UNK
  13. POTASSIUM [Concomitant]
     Dosage: 20 mug, UNK
  14. B COMPLEX WITH C [Concomitant]
  15. METHOTREXATE [Concomitant]
     Dosage: 2.5 mg, UNK
  16. GLIPIZIDE [Concomitant]
     Dosage: 5 mg, UNK
  17. DILTIAZEM [Concomitant]
     Dosage: 120 mg, UNK
  18. CITRACAL + D                       /01438101/ [Concomitant]
  19. VITAMIN D /00107901/ [Concomitant]
     Dosage: 400 IU, UNK
  20. MAGNESIUM OXIDE [Concomitant]
     Dosage: 250 mg, UNK
  21. MULTIVITAMIN                       /00097801/ [Concomitant]
  22. VALIUM                             /00017001/ [Concomitant]
     Dosage: 2 mg, UNK
  23. TEMAZEPAM [Concomitant]
     Dosage: 30 mg, UNK
  24. TRAZODONE [Concomitant]
     Dosage: 100 mg, UNK
  25. SOMA [Concomitant]
     Dosage: 350 mg, UNK
  26. SAVELLA [Concomitant]
     Dosage: 100 mg, UNK

REACTIONS (2)
  - Weight increased [Unknown]
  - Oedema peripheral [Unknown]
